FAERS Safety Report 6447508-5 (Version None)
Quarter: 2009Q4

REPORT INFORMATION
  Report Type: 
  Country: None (occurrence: None)
  Receive Date: 20091119
  Receipt Date: 20091116
  Transmission Date: 20100525
  Serious: Yes (Death)
  Sender: FDA-Public Use
  Company Number: BR-ABBOTT-09P-020-0608796-00

PATIENT
  Sex: Female
  Weight: 60 kg

DRUGS (6)
  1. HUMIRA [Suspect]
     Indication: RHEUMATOID ARTHRITIS
     Route: 058
  2. GLUCOSAMINE SULFATE [Concomitant]
     Indication: BONE DISORDER
     Route: 048
  3. CALCIUM [Concomitant]
     Indication: OSTEOPOROSIS
     Route: 048
  4. OMEPRAZOLE [Concomitant]
     Indication: GASTRIC DISORDER
     Route: 048
  5. CHLORTHALIDONE [Concomitant]
     Indication: HYPERTENSION
     Route: 048
  6. RISEDRONATE SODIUM [Concomitant]
     Indication: MUSCULOSKELETAL PAIN
     Route: 048

REACTIONS (2)
  - ASTHENIA [None]
  - MYOCARDIAL INFARCTION [None]
